FAERS Safety Report 23409047 (Version 1)
Quarter: 2024Q1

REPORT INFORMATION
  Report Type: Spontaneous
  Country: IN (occurrence: IN)
  Receive Date: 20240117
  Receipt Date: 20240117
  Transmission Date: 20240410
  Serious: Yes (Other)
  Sender: FDA-Public Use
  Company Number: IN-GILEAD-2024-0658595

PATIENT
  Age: 61 Year
  Sex: Male

DRUGS (4)
  1. TENOFOVIR DISOPROXIL FUMARATE [Suspect]
     Active Substance: TENOFOVIR DISOPROXIL FUMARATE
     Indication: HIV infection
     Dosage: UNK
     Route: 065
  2. HYDROXYCHLOROQUINE [Concomitant]
     Active Substance: HYDROXYCHLOROQUINE
     Dosage: 200 MG, BID
  3. LAMIVUDINE [Concomitant]
     Active Substance: LAMIVUDINE
  4. EFAVIRENZ [Concomitant]
     Active Substance: EFAVIRENZ

REACTIONS (2)
  - Chronic cutaneous lupus erythematosus [Unknown]
  - Immune reconstitution inflammatory syndrome [Unknown]
